FAERS Safety Report 8911808 (Version 2)
Quarter: 2012Q4

REPORT INFORMATION
  Report Type: 
  Country: US (occurrence: US)
  Receive Date: 20121115
  Receipt Date: 20121221
  Transmission Date: 20130627
  Serious: Yes (Death, Hospitalization)
  Sender: FDA-Public Use
  Company Number: US-GLAXOSMITHKLINE-A1001078A

PATIENT
  Age: 48 Year
  Sex: Female
  Weight: 69.1 kg

DRUGS (3)
  1. TYKERB [Suspect]
     Indication: BREAST CANCER
     Dosage: 1250MG per day
     Route: 048
     Dates: start: 20120323
  2. XELODA [Concomitant]
  3. GEMZAR [Concomitant]

REACTIONS (1)
  - Pericardial effusion [Fatal]
